FAERS Safety Report 8083529-7 (Version None)
Quarter: 2012Q1

REPORT INFORMATION
  Report Type: 
  Country: None (occurrence: None)
  Receive Date: 20120127
  Receipt Date: 20110307
  Transmission Date: 20120608
  Serious: Yes (Other)
  Sender: FDA-Public Use
  Company Number: US-ABBOTT-11P-163-0709594-00

PATIENT
  Sex: Female
  Weight: 77.634 kg

DRUGS (5)
  1. HUMIRA [Suspect]
     Route: 058
     Dates: end: 20110103
  2. UNKNOWN INSULIN [Concomitant]
     Indication: DIABETES MELLITUS
     Route: 058
  3. HUMIRA [Suspect]
     Indication: CROHN'S DISEASE
     Route: 058
     Dates: start: 20030601, end: 20090601
  4. HUMIRA [Suspect]
     Route: 058
     Dates: end: 20100601
  5. HUMIRA [Suspect]
     Route: 058
     Dates: start: 20110305

REACTIONS (3)
  - ARTHRALGIA [None]
  - STAPHYLOCOCCAL INFECTION [None]
  - SKIN NECROSIS [None]
